FAERS Safety Report 18683555 (Version 1)
Quarter: 2020Q4

REPORT INFORMATION
  Report Type: Spontaneous
  Country: US (occurrence: US)
  Receive Date: 20201230
  Receipt Date: 20201230
  Transmission Date: 20210114
  Serious: Yes (Other)
  Sender: FDA-Public Use
  Company Number: None

PATIENT
  Age: 33 Year
  Sex: Female
  Weight: 57.6 kg

DRUGS (1)
  1. PHEXXI [Suspect]
     Active Substance: CITRIC ACID MONOHYDRATE\LACTIC ACID, L-\POTASSIUM BITARTRATE
     Indication: CONTRACEPTION
     Dosage: ?          QUANTITY:1 SUPPOSITORY(IES);OTHER FREQUENCY:1H OR IMMEDIATELY;?
     Route: 067
     Dates: start: 20201206, end: 20201229

REACTIONS (2)
  - Pregnancy [None]
  - Drug exposure before pregnancy [None]

NARRATIVE: CASE EVENT DATE: 20201230
